FAERS Safety Report 18223464 (Version 1)
Quarter: 2020Q3

REPORT INFORMATION
  Report Type: Report from Study
  Country: JP (occurrence: JP)
  Receive Date: 20200902
  Receipt Date: 20200902
  Transmission Date: 20201103
  Serious: Yes (Hospitalization)
  Sender: FDA-Public Use
  Company Number: JP-EMD SERONO-9182704

PATIENT
  Age: 60 Year

DRUGS (1)
  1. BAVENCIO [Suspect]
     Active Substance: AVELUMAB
     Indication: RENAL CELL CARCINOMA
     Dosage: 600 (UNSPECIFIED UNIT)
     Route: 041
     Dates: start: 20200512, end: 20200530

REACTIONS (2)
  - Cholecystitis [Unknown]
  - Disease progression [Unknown]

NARRATIVE: CASE EVENT DATE: 2020
